FAERS Safety Report 10549296 (Version 1)
Quarter: 2014Q4

REPORT INFORMATION
  Report Type: Spontaneous
  Country: US (occurrence: None)
  Receive Date: 20141016
  Receipt Date: 20141016
  Transmission Date: 20150529
  Serious: Yes (Other)
  Sender: FDA-Public Use
  Company Number: CABO-14004441

PATIENT
  Age: 7 Year
  Sex: Female

DRUGS (5)
  1. COMETRIQ [Suspect]
     Active Substance: CABOZANTINIB S-MALATE
     Indication: MALIGNANT NEOPLASM OF RENAL PELVIS
     Route: 048
     Dates: start: 20140620
  2. BICITRA (CITRIC ACID, SODIUM CITRATE ACID) [Concomitant]
  3. MORPHINE (MORPHINE) [Concomitant]
  4. BACTRIM [Concomitant]
     Active Substance: SULFAMETHOXAZOLE\TRIMETHOPRIM
  5. LEVAQUIN [Concomitant]
     Active Substance: LEVOFLOXACIN

REACTIONS (12)
  - Decreased appetite [None]
  - Abdominal pain upper [None]
  - Erythema [None]
  - Fatigue [None]
  - Nausea [None]
  - Hair colour changes [None]
  - Constipation [None]
  - Dysphonia [None]
  - Pain in extremity [None]
  - Diarrhoea [None]
  - Pneumonia [None]
  - Off label use [None]

NARRATIVE: CASE EVENT DATE: 20140609
